FAERS Safety Report 7989857-5 (Version None)
Quarter: 2011Q4

REPORT INFORMATION
  Report Type: 
  Country: None (occurrence: None)
  Receive Date: 20111219
  Receipt Date: 20110419
  Transmission Date: 20120403
  Serious: No
  Sender: FDA-Public Use
  Company Number: US-ASTRAZENECA-2010SE48534

PATIENT
  Age: 829 Month
  Sex: Female

DRUGS (3)
  1. CRESTOR [Suspect]
     Indication: HYPERCHOLESTEROLAEMIA
     Route: 048
     Dates: start: 20090507, end: 20110301
  2. DIOVAN [Concomitant]
     Indication: HYPERTENSION
  3. RESTORIL [Concomitant]

REACTIONS (4)
  - NAUSEA [None]
  - VOMITING [None]
  - MYALGIA [None]
  - DIARRHOEA [None]
